FAERS Safety Report 23086314 (Version 1)
Quarter: 2023Q4

REPORT INFORMATION
  Report Type: Spontaneous
  Country: US (occurrence: US)
  Receive Date: 20231019
  Receipt Date: 20231019
  Transmission Date: 20240110
  Serious: No
  Sender: FDA-Public Use
  Company Number: US-009507513-2309USA008186

PATIENT
  Sex: Female
  Weight: 112.47 kg

DRUGS (3)
  1. KEYTRUDA [Suspect]
     Active Substance: PEMBROLIZUMAB
     Indication: Endometrial neoplasm
     Dosage: UNK
     Dates: start: 2023
  2. LENVATINIB MESYLATE [Suspect]
     Active Substance: LENVATINIB MESYLATE
     Indication: Endometrial neoplasm
     Dosage: 20 MG ORAL IN THE MORNING
     Route: 048
     Dates: start: 20230714
  3. TRAMADOL HCL [Concomitant]
     Active Substance: TRAMADOL HYDROCHLORIDE

REACTIONS (1)
  - Thyroid disorder [Unknown]

NARRATIVE: CASE EVENT DATE: 20230101
